FAERS Safety Report 15342591 (Version 3)
Quarter: 2019Q3

REPORT INFORMATION
  Report Type: Spontaneous
  Country: US (occurrence: US)
  Receive Date: 20180903
  Receipt Date: 20190923
  Transmission Date: 20191004
  Serious: No
  Sender: FDA-Public Use
  Company Number: US-BRISTOL-MYERS SQUIBB COMPANY-BMS-2018-080019

PATIENT
  Sex: Female

DRUGS (1)
  1. ELIQUIS [Suspect]
     Active Substance: APIXABAN
     Indication: PRODUCT USED FOR UNKNOWN INDICATION
     Dosage: 5 MG, BID
     Route: 048
     Dates: start: 2014

REACTIONS (7)
  - Anxiety [Unknown]
  - Petechiae [Unknown]
  - Dizziness [Unknown]
  - Cystitis [Unknown]
  - Gait disturbance [Unknown]
  - Malaise [Unknown]
  - Otitis media [Unknown]
